FAERS Safety Report 21883694 (Version 1)
Quarter: 2023Q1

REPORT INFORMATION
  Report Type: Spontaneous
  Country: US (occurrence: None)
  Receive Date: 20230118
  Receipt Date: 20230118
  Transmission Date: 20230418
  Serious: No
  Sender: FDA-Public Use
  Company Number: None

PATIENT
  Sex: Male

DRUGS (1)
  1. HUMIRA [Suspect]
     Active Substance: ADALIMUMAB
     Indication: Inner ear disorder
     Dosage: 40MG EVERY 14 DAYS SUBCUTANEOUS
     Route: 058
     Dates: start: 20221223

REACTIONS (1)
  - Drug ineffective [None]
